FAERS Safety Report 18556820 (Version 6)
Quarter: 2021Q3

REPORT INFORMATION
  Report Type: Report from Study
  Country: US (occurrence: US)
  Receive Date: 20201128
  Receipt Date: 20210716
  Transmission Date: 20211014
  Serious: No
  Sender: FDA-Public Use
  Company Number: NVSC2020US311193

PATIENT
  Sex: Male

DRUGS (1)
  1. COSENTYX [Suspect]
     Active Substance: SECUKINUMAB
     Indication: PSORIATIC ARTHROPATHY
     Dosage: 300 MG, Q4W
     Route: 058

REACTIONS (4)
  - Musculoskeletal stiffness [Not Recovered/Not Resolved]
  - Peripheral swelling [Unknown]
  - Drug ineffective [Not Recovered/Not Resolved]
  - Musculoskeletal discomfort [Unknown]
